FAERS Safety Report 4562662-8 (Version None)
Quarter: 2005Q1

REPORT INFORMATION
  Report Type: 
  Country: None (occurrence: None)
  Receive Date: 20050127
  Receipt Date: 20041001
  Transmission Date: 20050727
  Serious: Yes (Other)
  Sender: FDA-Public Use
  Company Number: PHNU2004DE03441

PATIENT
  Age: 41 Year
  Sex: Male
  Weight: 57 kg

DRUGS (1)
  1. GLEEVEC [Suspect]
     Indication: GASTROINTESTINAL STROMAL TUMOUR
     Dosage: 400MG/DAY
     Route: 048
     Dates: start: 20020703

REACTIONS (5)
  - DENTAL CARIES [None]
  - ENAMEL ANOMALY [None]
  - TEETH BRITTLE [None]
  - TOOTH DISORDER [None]
  - TOOTH FRACTURE [None]
